FAERS Safety Report 4309207-5 (Version None)
Quarter: 2004Q1

REPORT INFORMATION
  Report Type: 
  Country: None (occurrence: None)
  Receive Date: 20040227
  Receipt Date: 20040219
  Transmission Date: 20041129
  Serious: Yes (Other)
  Sender: FDA-Public Use
  Company Number: GB-JNJFOC-20040204825

PATIENT
  Age: 70 Year
  Sex: Female

DRUGS (4)
  1. DUROGESIC (FENTANYL) PATCH [Suspect]
     Dosage: TRANSDERMAL
     Route: 062
  2. VALPROATE SODIUM [Concomitant]
  3. TEMAZEPAM [Concomitant]
  4. ZYDOL (TRAMADOL HYDROCHLORIDE) [Concomitant]

REACTIONS (4)
  - DRUG WITHDRAWAL SYNDROME [None]
  - DYSTONIA [None]
  - HYPERHIDROSIS [None]
  - PYREXIA [None]
